FAERS Safety Report 20934468 (Version 2)
Quarter: 2022Q2

REPORT INFORMATION
  Report Type: Spontaneous
  Country: JP (occurrence: JP)
  Receive Date: 20220608
  Receipt Date: 20220622
  Transmission Date: 20220721
  Serious: No
  Sender: FDA-Public Use
  Company Number: JP-Eisai-202113414_DVG_P_1

PATIENT
  Age: 84 Year
  Sex: Male

DRUGS (1)
  1. DAYVIGO [Suspect]
     Active Substance: LEMBOREXANT
     Indication: Insomnia
     Route: 048
     Dates: start: 20220315, end: 20220316

REACTIONS (1)
  - Rapid eye movements sleep abnormal [Recovered/Resolved]

NARRATIVE: CASE EVENT DATE: 20220315
